FAERS Safety Report 8288057-1 (Version None)
Quarter: 2012Q2

REPORT INFORMATION
  Report Type: 
  Country: None (occurrence: None)
  Receive Date: 20120411
  Receipt Date: 20120411
  Transmission Date: 20120825
  Serious: No
  Sender: FDA-Public Use
  Company Number: None

PATIENT
  Sex: Male
  Weight: 83 kg

DRUGS (2)
  1. PEMETREXED [Suspect]
     Dosage: 990 MG
  2. BEVACIZUMAB 1220MG (RHUMAB VEGF)  1220 MG [Suspect]
     Dosage: 1220 MG

REACTIONS (1)
  - HAEMATEMESIS [None]
